FAERS Safety Report 5773194-3 (Version None)
Quarter: 2008Q2

REPORT INFORMATION
  Report Type: 
  Country: None (occurrence: None)
  Receive Date: 20080613
  Receipt Date: 20080613
  Transmission Date: 20081010
  Serious: Yes (Life-Threatening)
  Sender: FDA-Public Use
  Company Number: None

PATIENT
  Age: 28 Year
  Sex: Female
  Weight: 74.8435 kg

DRUGS (1)
  1. SEROQUEL [Suspect]
     Indication: AFFECTIVE DISORDER
     Dosage: 200 MG. BEDTIME PO
     Route: 048
     Dates: start: 20080531, end: 20080612

REACTIONS (6)
  - DYSPNOEA [None]
  - FATIGUE [None]
  - IRRITABILITY [None]
  - MUSCULOSKELETAL STIFFNESS [None]
  - MYALGIA [None]
  - PANIC ATTACK [None]
